FAERS Safety Report 25462383 (Version 2)
Quarter: 2025Q2

REPORT INFORMATION
  Report Type: Report from Study
  Country: US (occurrence: US)
  Receive Date: 20250620
  Receipt Date: 20250625
  Transmission Date: 20250716
  Serious: Yes (Other)
  Sender: ABBVIE
  Company Number: US-ABBVIE-6327885

PATIENT
  Age: 52 Year
  Sex: Female

DRUGS (1)
  1. UBRELVY [Suspect]
     Active Substance: UBROGEPANT
     Indication: Migraine
     Route: 048
     Dates: start: 20190612, end: 202501

REACTIONS (4)
  - Cerebrovascular accident [Unknown]
  - Memory impairment [Unknown]
  - Brain fog [Not Recovered/Not Resolved]
  - Disability [Unknown]

NARRATIVE: CASE EVENT DATE: 20220101
